FAERS Safety Report 9401997 (Version 1)
Quarter: 2013Q3

REPORT INFORMATION
  Report Type: Spontaneous
  Country: US (occurrence: US)
  Receive Date: 20130716
  Receipt Date: 20130716
  Transmission Date: 20140515
  Serious: No
  Sender: FDA-Public Use
  Company Number: US-PFIZER INC-2013205562

PATIENT
  Age: 70 Year
  Sex: Female

DRUGS (13)
  1. INLYTA [Suspect]
     Indication: RENAL CANCER
     Dosage: 5 MG, UNK
     Dates: start: 20130626
  2. ASPIRIN [Concomitant]
     Dosage: UNK
  3. COUMADIN [Concomitant]
     Dosage: UNK
  4. BENADRYL ALLERGY [Concomitant]
     Dosage: UNK
  5. DIGOXIN [Concomitant]
     Dosage: UNK
  6. BENTYL [Concomitant]
     Dosage: UNK
  7. FLEXERIL [Concomitant]
     Dosage: UNK
  8. BIOTIN FORTE [Concomitant]
     Dosage: UNK
  9. GLUCOSAMINE CHONDROITIN PLUS [Concomitant]
     Dosage: UNK
  10. CALCIUM WITH VITAMIN D [Concomitant]
     Dosage: UNK
  11. IMODIUM A-D [Concomitant]
     Dosage: UNK
  12. CARDIZEM CD [Concomitant]
     Dosage: UNK
  13. IRON [Concomitant]
     Dosage: UNK

REACTIONS (1)
  - Malaise [Unknown]
